FAERS Safety Report 18225375 (Version 1)
Quarter: 2020Q3

REPORT INFORMATION
  Report Type: Spontaneous
  Country: CA (occurrence: CA)
  Receive Date: 20200903
  Receipt Date: 20200903
  Transmission Date: 20201103
  Serious: Yes (Other)
  Sender: FDA-Public Use
  Company Number: CA-TEVA-2020-CA-1821247

PATIENT
  Age: 58 Year
  Sex: Female
  Weight: 70.37 kg

DRUGS (4)
  1. ROSUVASTATIN. [Concomitant]
     Active Substance: ROSUVASTATIN
  2. ACT BUPROPION XL [Suspect]
     Active Substance: BUPROPION
     Indication: DEPRESSION
     Dosage: 2 DOSAGE FORMS DAILY;
     Route: 048
  3. DESICCATED THYROID (PORCINE) [Concomitant]
  4. PANTOPRAZOLE SODIUM. [Concomitant]
     Active Substance: PANTOPRAZOLE SODIUM

REACTIONS (3)
  - Drug intolerance [Unknown]
  - Nausea [Unknown]
  - Pain in extremity [Unknown]
